FAERS Safety Report 17460515 (Version 3)
Quarter: 2022Q2

REPORT INFORMATION
  Report Type: Spontaneous
  Country: US (occurrence: US)
  Receive Date: 20200226
  Receipt Date: 20220504
  Transmission Date: 20220721
  Serious: No
  Sender: FDA-Public Use
  Company Number: US-PFIZER INC-2020084871

PATIENT
  Age: 60 Year
  Sex: Female
  Weight: 68.04 kg

DRUGS (1)
  1. LYRICA [Suspect]
     Active Substance: PREGABALIN
     Indication: Diabetic neuropathy
     Dosage: 150 MG, 3X/DAY
     Dates: end: 2019

REACTIONS (4)
  - Withdrawal syndrome [Recovered/Resolved]
  - Ear disorder [Recovered/Resolved]
  - Frustration tolerance decreased [Unknown]
  - Off label use [Unknown]

NARRATIVE: CASE EVENT DATE: 20190101
